FAERS Safety Report 9836710 (Version 2)
Quarter: 2014Q1

REPORT INFORMATION
  Report Type: Report from Study
  Country: DE (occurrence: DE)
  Receive Date: 20140123
  Receipt Date: 20140203
  Transmission Date: 20141002
  Serious: Yes (Other)
  Sender: FDA-Public Use
  Company Number: PHHY2014DE006888

PATIENT
  Sex: Female

DRUGS (3)
  1. FTY 720 [Suspect]
     Indication: MULTIPLE SCLEROSIS
     Dosage: 0.5 MG, QD
     Route: 048
     Dates: start: 20120110
  2. VENLAFAXINE [Concomitant]
     Indication: ANXIETY DISORDER
     Dosage: 1 DF, QD
     Dates: start: 20120628, end: 20120701
  3. PAROXETINE [Concomitant]
     Indication: ANXIETY DISORDER
     Dosage: 1 DF, UNK
     Dates: start: 20120704

REACTIONS (2)
  - Pituitary tumour benign [Not Recovered/Not Resolved]
  - Galactorrhoea [Unknown]
